FAERS Safety Report 7659374-0 (Version None)
Quarter: 2011Q3

REPORT INFORMATION
  Report Type: 
  Country: None (occurrence: None)
  Receive Date: 20110805
  Receipt Date: 20110726
  Transmission Date: 20111222
  Serious: Yes (Death, Other)
  Sender: FDA-Public Use
  Company Number: GB-ROCHE-792873

PATIENT
  Sex: Male

DRUGS (1)
  1. XELODA [Suspect]
     Route: 065

REACTIONS (2)
  - INFECTION [None]
  - DEATH [None]
